FAERS Safety Report 10637320 (Version 1)
Quarter: 2014Q4

REPORT INFORMATION
  Report Type: Spontaneous
  Country: US (occurrence: US)
  Receive Date: 20141208
  Receipt Date: 20141208
  Transmission Date: 20150529
  Serious: No
  Sender: FDA-Public Use
  Company Number: US-PFIZER INC-2014333994

PATIENT
  Sex: Female
  Weight: 79 kg

DRUGS (4)
  1. CELEBREX [Suspect]
     Active Substance: CELECOXIB
     Dosage: 200 MG, DAILY
  2. ASPIRIN. [Concomitant]
     Active Substance: ASPIRIN
     Dosage: 81 LOW DOSE ONE
  3. LIPITOR [Concomitant]
     Active Substance: ATORVASTATIN CALCIUM
     Dosage: 20 MG, 1X/DAY
  4. CO-Q10 [Concomitant]
     Dosage: ONE TABLET EVERY OTHER DAY OR EVERY TWO OR THREE DAYS

REACTIONS (2)
  - Intentional product misuse [Unknown]
  - Memory impairment [Unknown]
